FAERS Safety Report 12670681 (Version 2)
Quarter: 2016Q3

REPORT INFORMATION
  Report Type: Spontaneous
  Country: TR (occurrence: TR)
  Receive Date: 20160822
  Receipt Date: 20160822
  Transmission Date: 20161109
  Serious: Yes (Other)
  Sender: FDA-Public Use
  Company Number: TR-CIPLA LTD.-2016TR17394

PATIENT

DRUGS (8)
  1. TOPIRAMATE. [Suspect]
     Active Substance: TOPIRAMATE
     Indication: SEIZURE
     Dosage: UNK
     Route: 065
  2. LEVETIRACETAM. [Suspect]
     Active Substance: LEVETIRACETAM
     Indication: ATONIC SEIZURES
     Dosage: 3000 MG, PER DAY
     Route: 065
  3. RUFINAMIDE [Suspect]
     Active Substance: RUFINAMIDE
     Dosage: UNK, DOSE TITRATED WITH AN INCREMENT OF 50 MG EVERY 3 DAYS UP TO 250 MG/DAY OVER 2 WEEKS
     Route: 065
  4. VIGABATRIN [Suspect]
     Active Substance: VIGABATRIN
     Indication: SEIZURE
     Dosage: UNK
     Route: 065
  5. RUFINAMIDE [Suspect]
     Active Substance: RUFINAMIDE
     Indication: ATONIC SEIZURES
     Dosage: 100 MG, PER DAY, BASELINE
     Route: 065
  6. VALPROIC ACID. [Suspect]
     Active Substance: VALPROIC ACID
     Indication: ATONIC SEIZURES
     Dosage: 3000 MG, PER DAY
     Route: 065
  7. PHENOBARBITAL. [Suspect]
     Active Substance: PHENOBARBITAL
     Indication: SEIZURE
     Dosage: UNK
     Route: 065
  8. CLOBAZAM [Suspect]
     Active Substance: CLOBAZAM
     Indication: ATONIC SEIZURES
     Dosage: 40 MG, PER DAY
     Route: 065

REACTIONS (2)
  - Drug ineffective [Unknown]
  - Condition aggravated [Unknown]
